FAERS Safety Report 10043666 (Version 2)
Quarter: 2014Q2

REPORT INFORMATION
  Report Type: Spontaneous
  Country: US (occurrence: US)
  Receive Date: 20140328
  Receipt Date: 20140513
  Transmission Date: 20141212
  Serious: Yes (Other)
  Sender: FDA-Public Use
  Company Number: US-JNJFOC-20140311777

PATIENT
  Sex: Male
  Weight: 90.72 kg

DRUGS (10)
  1. STELARA [Suspect]
     Indication: PSORIASIS
     Route: 058
     Dates: start: 20120212, end: 20131214
  2. HUMIRA [Suspect]
     Indication: PSORIASIS
     Route: 058
     Dates: start: 201401
  3. ELOCON [Concomitant]
     Indication: PSORIASIS
     Route: 065
  4. HYZAAR [Concomitant]
     Indication: HYPERTENSION
     Route: 065
  5. LIPITOR [Concomitant]
     Indication: HYPERLIPIDAEMIA
     Route: 065
  6. NEURONTIN [Concomitant]
     Route: 065
  7. NORCO [Concomitant]
     Route: 065
  8. PLAVIX [Concomitant]
     Indication: POLYCYTHAEMIA
     Route: 065
  9. PLETAL [Concomitant]
     Indication: PERIPHERAL VASCULAR DISORDER
     Route: 065
  10. XANAX [Concomitant]
     Indication: INSOMNIA
     Route: 065

REACTIONS (2)
  - Pulmonary fibrosis [Recovering/Resolving]
  - Organising pneumonia [Recovering/Resolving]
